FAERS Safety Report 23886782 (Version 1)
Quarter: 2024Q2

REPORT INFORMATION
  Report Type: Report from Study
  Country: US (occurrence: US)
  Receive Date: 20240522
  Receipt Date: 20240522
  Transmission Date: 20240715
  Serious: Yes (Other)
  Sender: FDA-Public Use
  Company Number: US-JNJFOC-20240540801

PATIENT
  Age: 61 Year
  Sex: Female

DRUGS (2)
  1. SPRAVATO [Suspect]
     Active Substance: ESKETAMINE
     Indication: Depression
     Dosage: ^56 MG, 1 TOTAL DOSE^
     Dates: start: 20230619, end: 20230619
  2. SPRAVATO [Suspect]
     Active Substance: ESKETAMINE
     Dosage: ^84 MG, 23 TOTAL DOSES^
     Dates: start: 20230621, end: 20231116

REACTIONS (3)
  - Limb injury [Unknown]
  - Joint injury [Unknown]
  - Fall [Unknown]

NARRATIVE: CASE EVENT DATE: 20240301
